FAERS Safety Report 4604813-2 (Version None)
Quarter: 2005Q2

REPORT INFORMATION
  Report Type: 
  Country: None (occurrence: None)
  Receive Date: 20050224
  Receipt Date: 20040315
  Transmission Date: 20051028
  Serious: Yes (Hospitalization)
  Sender: FDA-Public Use
  Company Number: 04P-163-0253381-00

PATIENT
  Age: 49 Year
  Sex: Female

DRUGS (1)
  1. MIVACRON [Suspect]
     Indication: NEUROMUSCULAR BLOCKADE
     Dosage: 10 MG, ONCE, INTRAVENOUS
     Route: 042
     Dates: start: 20040310, end: 20040310

REACTIONS (1)
  - ANAPHYLACTIC REACTION [None]
